FAERS Safety Report 15652187 (Version 2)
Quarter: 2019Q1

REPORT INFORMATION
  Report Type: Spontaneous
  Country: MX (occurrence: MX)
  Receive Date: 20181123
  Receipt Date: 20190115
  Transmission Date: 20190417
  Serious: Yes (Death, Other)
  Sender: FDA-Public Use
  Company Number: MX-009507513-1811MEX009216

PATIENT
  Age: 52 Year
  Sex: Male
  Weight: 77 kg

DRUGS (15)
  1. PROPRANOLOL [Concomitant]
     Active Substance: PROPRANOLOL HYDROCHLORIDE
     Indication: VARICES OESOPHAGEAL
  2. PROPRANOLOL [Concomitant]
     Active Substance: PROPRANOLOL HYDROCHLORIDE
     Indication: PORTAL HYPERTENSION
  3. KETOROLAC TROMETHAMINE. [Concomitant]
     Active Substance: KETOROLAC TROMETHAMINE
     Dosage: 30 MILLIGRAM
     Route: 042
     Dates: start: 20161208, end: 20161209
  4. DIPYRONE [Concomitant]
     Active Substance: DIPYRONE
     Dosage: 500 MILLIGRAM
     Route: 042
     Dates: start: 20161208, end: 20161209
  5. ENOXAPARIN SODIUM. [Concomitant]
     Active Substance: ENOXAPARIN SODIUM
     Dosage: 40 MILLIGRAM
     Route: 058
     Dates: start: 20161208, end: 20161209
  6. BUPRENORPHINE. [Concomitant]
     Active Substance: BUPRENORPHINE
     Dosage: 0.3 MILLIGRAM
     Route: 042
     Dates: start: 20161208, end: 20161209
  7. ONDANSETRON [Concomitant]
     Active Substance: ONDANSETRON
     Dosage: 8 MILLIGRAM
     Route: 042
     Dates: start: 20161208, end: 20161209
  8. NOREPINEPHRINE. [Concomitant]
     Active Substance: NOREPINEPHRINE
     Indication: SEPTIC SHOCK
     Dosage: 8 MILLIGRAM IN 100 ML AT 8 ML/HR
     Route: 042
     Dates: start: 20161208, end: 20161209
  9. IMIPENEM AND CILASTATIN [Suspect]
     Active Substance: CILASTATIN SODIUM\IMIPENEM
     Indication: ANTIBIOTIC THERAPY
     Dosage: 500 MILLIGRAM, Q12H
     Route: 042
     Dates: start: 20161208, end: 20161209
  10. OMEPRAZOLE. [Concomitant]
     Active Substance: OMEPRAZOLE
     Dosage: 40 MILLIGRAM
     Route: 042
     Dates: start: 20161208, end: 20161209
  11. CALCIUM GLUCONATE. [Concomitant]
     Active Substance: CALCIUM GLUCONATE
     Dosage: 1 GRAM
     Route: 042
     Dates: start: 20161208, end: 20161209
  12. CLINDAMYCIN. [Concomitant]
     Active Substance: CLINDAMYCIN
     Indication: ANTIBIOTIC THERAPY
     Dosage: 60 MILLIGRAM
     Route: 042
     Dates: start: 20161208, end: 20161209
  13. CEFTRIAXONE. [Concomitant]
     Active Substance: CEFTRIAXONE
     Indication: ANTIBIOTIC THERAPY
     Dosage: 1 GRAM
     Route: 042
     Dates: start: 20161208, end: 20161209
  14. HYDROCORTISONE. [Concomitant]
     Active Substance: HYDROCORTISONE
     Dosage: 100 MILLIGRAM
     Route: 042
     Dates: start: 20161208, end: 20161209
  15. PROPRANOLOL [Concomitant]
     Active Substance: PROPRANOLOL HYDROCHLORIDE
     Indication: ESSENTIAL HYPERTENSION
     Dosage: 20 MILLIGRAM, Q12H

REACTIONS (1)
  - Pathogen resistance [Fatal]
